FAERS Safety Report 10074946 (Version 2)
Quarter: 2014Q2

REPORT INFORMATION
  Report Type: Spontaneous
  Country: US (occurrence: US)
  Receive Date: 20140414
  Receipt Date: 20140508
  Transmission Date: 20141212
  Serious: No
  Sender: FDA-Public Use
  Company Number: US-BIOGENIDEC-2014BI024082

PATIENT
  Age: 61 Year
  Sex: Female

DRUGS (13)
  1. TRAMADOL [Concomitant]
  2. ESTRADIOL [Concomitant]
  3. AMBIEN [Concomitant]
  4. GABAPENTIN [Concomitant]
  5. FLONASE [Concomitant]
  6. ALEVE [Concomitant]
  7. ADVAIR [Concomitant]
  8. DITROPAN [Concomitant]
  9. VENTOLIN INHALER [Concomitant]
  10. TECFIDERA [Suspect]
     Indication: MULTIPLE SCLEROSIS
     Route: 048
     Dates: start: 20140225, end: 20140303
  11. TECFIDERA [Suspect]
     Indication: MULTIPLE SCLEROSIS
     Route: 048
     Dates: start: 20140304
  12. VIT D [Concomitant]
  13. CALCIUM [Concomitant]

REACTIONS (5)
  - Infection [Unknown]
  - Diarrhoea [Recovered/Resolved]
  - Gastroenteritis viral [Recovered/Resolved]
  - Vomiting [Recovered/Resolved]
  - Nausea [Unknown]
